FAERS Safety Report 17596627 (Version 2)
Quarter: 2024Q3

REPORT INFORMATION
  Report Type: Spontaneous
  Country: FR (occurrence: FR)
  Receive Date: 20200330
  Receipt Date: 20240729
  Transmission Date: 20241016
  Serious: Yes (Hospitalization, Other)
  Sender: AUROBINDO
  Company Number: FR-AFSSAPS-LL20200416

PATIENT
  Age: 64 Year
  Sex: Male

DRUGS (6)
  1. DOXORUBICIN [Suspect]
     Active Substance: DOXORUBICIN
     Indication: Plasma cell myeloma
     Dosage: 108 MILLIGRAM
     Route: 042
     Dates: start: 20200131, end: 2020
  2. DULOXETINE [Suspect]
     Active Substance: DULOXETINE
     Indication: Depression
     Dosage: 60 MILLIGRAM
     Route: 048
     Dates: start: 20200206, end: 20200219
  3. ADCETRIS [Suspect]
     Active Substance: BRENTUXIMAB VEDOTIN
     Indication: Plasma cell myeloma
     Dosage: 175 MILLIGRAM
     Route: 042
     Dates: start: 20200203, end: 2020
  4. CYCLOPHOSPHAMIDE [Suspect]
     Active Substance: CYCLOPHOSPHAMIDE
     Indication: Plasma cell myeloma
     Dosage: 1610 MILLIGRAM
     Route: 042
     Dates: start: 20200131, end: 2020
  5. VINCRISTINE SULFATE [Suspect]
     Active Substance: VINCRISTINE SULFATE
     Indication: Plasma cell myeloma
     Dosage: 2 MILLIGRAM
     Route: 042
     Dates: start: 20200131, end: 2020
  6. FILGRASTIM [Suspect]
     Active Substance: FILGRASTIM
     Indication: Prophylaxis
     Dosage: 1 DOSAGE FORM
     Route: 058
     Dates: start: 20200206, end: 20200212

REACTIONS (6)
  - Liver injury [Recovered/Resolved]
  - Thrombocytopenia [Recovered/Resolved]
  - Hepatitis [Recovered/Resolved]
  - Purpura [Recovered/Resolved]
  - Rash erythematous [Recovered/Resolved]
  - Off label use [Unknown]

NARRATIVE: CASE EVENT DATE: 20200131
